FAERS Safety Report 19380401 (Version 1)
Quarter: 2021Q2

REPORT INFORMATION
  Report Type: Spontaneous
  Country: US (occurrence: US)
  Receive Date: 20210607
  Receipt Date: 20210607
  Transmission Date: 20210717
  Serious: No
  Sender: FDA-Public Use
  Company Number: US-TEVA-2021-US-1914434

PATIENT
  Sex: Female

DRUGS (4)
  1. ALBUTEROL. [Suspect]
     Active Substance: ALBUTEROL
     Indication: ASTHMA
     Route: 065
  2. ALBUTEROL. [Suspect]
     Active Substance: ALBUTEROL
  3. ALBUTEROL. [Suspect]
     Active Substance: ALBUTEROL
  4. ALBUTEROL. [Suspect]
     Active Substance: ALBUTEROL

REACTIONS (1)
  - Drug ineffective [Unknown]
